FAERS Safety Report 9723135 (Version 2)
Quarter: 2014Q1

REPORT INFORMATION
  Report Type: Report from Study
  Country: GB (occurrence: GB)
  Receive Date: 20131202
  Receipt Date: 20140130
  Transmission Date: 20141002
  Serious: Yes (Hospitalization)
  Sender: FDA-Public Use
  Company Number: GB-ROCHE-1307642

PATIENT
  Age: 41 Year
  Sex: Female

DRUGS (22)
  1. PERTUZUMAB [Suspect]
     Indication: HER-2 POSITIVE BREAST CANCER
     Dosage: LAST DOSE PRIOR TO SAE WAS 07/NOV/2013?LOADING DOSE
     Route: 042
     Dates: start: 20131107
  2. TRASTUZUMAB [Suspect]
     Indication: HER-2 POSITIVE BREAST CANCER
     Dosage: LAST DOSE PRIOR TO SAE WAS 07 NOV 2013?LOADING DOSE
     Route: 042
     Dates: start: 20131107
  3. DOCETAXEL [Suspect]
     Indication: HER-2 POSITIVE BREAST CANCER
     Dosage: LAST DOSE PRIOR TO SAE 07/NOV/2013
     Route: 042
     Dates: start: 20131107
  4. LANSOPRAZOLE [Concomitant]
     Route: 065
     Dates: start: 2012, end: 20131216
  5. LANSOPRAZOLE [Concomitant]
     Route: 065
     Dates: start: 20131216
  6. DICLOFENAC [Concomitant]
     Route: 065
     Dates: start: 2012, end: 20131127
  7. DICLOFENAC [Concomitant]
     Route: 065
     Dates: start: 20131128, end: 20131128
  8. ANUSOL-HC CREAM (UNITED KINGDOM) [Concomitant]
     Route: 065
     Dates: start: 20131116, end: 20140106
  9. OXYTETRACYCLINE [Concomitant]
     Route: 065
     Dates: start: 20131128, end: 20131128
  10. PARACETAMOL [Concomitant]
     Route: 065
     Dates: start: 20131128
  11. FILGRASTIM [Concomitant]
     Route: 065
     Dates: start: 20140110, end: 20140115
  12. FILGRASTIM [Concomitant]
     Route: 065
     Dates: start: 20131220, end: 20131225
  13. FILGRASTIM [Concomitant]
     Route: 065
     Dates: start: 20131129, end: 20131204
  14. CLOTRIMAZOLE CREAM [Concomitant]
     Dosage: BD/TDS TOPICAL APPLICATION
     Route: 061
     Dates: start: 20131205, end: 20131212
  15. IBUPROFEN [Concomitant]
     Route: 065
     Dates: start: 20140110, end: 20140115
  16. IBUPROFEN [Concomitant]
     Route: 065
     Dates: start: 20131220, end: 20131225
  17. SENOKOT [Concomitant]
     Dosage: 2 TABLETS
     Route: 065
     Dates: start: 20140110, end: 20140115
  18. SENOKOT [Concomitant]
     Route: 065
     Dates: start: 20131219, end: 20131225
  19. LOPERAMIDE [Concomitant]
     Dosage: PRN
     Route: 065
     Dates: start: 20140116, end: 20140125
  20. LOPERAMIDE [Concomitant]
     Dosage: 2-4 MG PRN
     Route: 065
     Dates: start: 20131226, end: 20131227
  21. GTN [Concomitant]
     Route: 065
     Dates: start: 20140106
  22. CLOTRIMAZOLE/HYDROCORTISONE [Concomitant]
     Dosage: TOPICAL 1% +?1%
     Route: 061
     Dates: start: 20140106, end: 20140127

REACTIONS (1)
  - Tooth infection [Recovered/Resolved]
